FAERS Safety Report 8517266-9 (Version None)
Quarter: 2012Q3

REPORT INFORMATION
  Report Type: 
  Country: None (occurrence: None)
  Receive Date: 20120718
  Receipt Date: 20120711
  Transmission Date: 20120928
  Serious: Yes (Hospitalization, Other)
  Sender: FDA-Public Use
  Company Number: JP-PFIZER INC-2012127629

PATIENT
  Age: 62 Year
  Sex: Male
  Weight: 57 kg

DRUGS (4)
  1. GABAPENTIN [Suspect]
     Indication: PARTIAL SEIZURES
     Dosage: 1200 MG/DAY
     Route: 048
     Dates: start: 20120120, end: 20120525
  2. TEGRETOL [Suspect]
     Indication: EPILEPSY
     Dosage: 200 MG, 1X/DAY
     Route: 048
     Dates: start: 20120127, end: 20120524
  3. ADALAT CC [Concomitant]
     Dosage: UNK
     Route: 048
  4. ZESTRIL [Concomitant]
     Dosage: UNK
     Route: 048

REACTIONS (9)
  - EOSINOPHIL COUNT INCREASED [None]
  - ASPARTATE AMINOTRANSFERASE INCREASED [None]
  - RENAL IMPAIRMENT [None]
  - ALANINE AMINOTRANSFERASE INCREASED [None]
  - GAMMA-GLUTAMYLTRANSFERASE INCREASED [None]
  - BLOOD ALKALINE PHOSPHATASE INCREASED [None]
  - PYREXIA [None]
  - RED BLOOD CELL COUNT DECREASED [None]
  - WHITE BLOOD CELL COUNT INCREASED [None]
